FAERS Safety Report 25129682 (Version 4)
Quarter: 2025Q2

REPORT INFORMATION
  Report Type: Spontaneous
  Country: US (occurrence: US)
  Receive Date: 20250327
  Receipt Date: 20250508
  Transmission Date: 20250717
  Serious: Yes (Other)
  Sender: PFIZER
  Company Number: US-PFIZER INC-PV202500035480

PATIENT
  Age: 87 Year
  Sex: Female
  Weight: 82.1 kg

DRUGS (6)
  1. TIKOSYN [Suspect]
     Active Substance: DOFETILIDE
     Indication: Atrial fibrillation
     Dosage: UNK, 2X/DAY
     Route: 048
     Dates: start: 20240802
  2. TIKOSYN [Suspect]
     Active Substance: DOFETILIDE
     Indication: Arrhythmia
  3. METOPROLOL TARTRATE [Concomitant]
     Active Substance: METOPROLOL TARTRATE
     Dosage: 50 MG, 2X/DAY (2 TABLETS)
  4. FELODIPINE [Concomitant]
     Active Substance: FELODIPINE
     Dosage: 1 DF, 1 TABLET A DAY
  5. ELIQUIS [Concomitant]
     Active Substance: APIXABAN
     Dosage: 5 MG, 2X/DAY
  6. LEVOTHYROXINE SODIUM [Concomitant]
     Active Substance: LEVOTHYROXINE SODIUM

REACTIONS (1)
  - Cardiac disorder [Unknown]
